FAERS Safety Report 23127979 (Version 1)
Quarter: 2023Q4

REPORT INFORMATION
  Report Type: Spontaneous
  Country: US (occurrence: US)
  Receive Date: 20231031
  Receipt Date: 20231031
  Transmission Date: 20240109
  Serious: Yes (Hospitalization, Other)
  Sender: FDA-Public Use
  Company Number: US-APOTEX-2023AP016048

PATIENT
  Age: 52 Year
  Sex: Male

DRUGS (1)
  1. LACOSAMIDE [Suspect]
     Active Substance: LACOSAMIDE
     Indication: Epilepsy
     Dosage: 50 MILLIGRAM, BID
     Route: 065

REACTIONS (4)
  - Acute psychosis [Recovered/Resolved]
  - Hallucination, auditory [Recovered/Resolved]
  - Tangentiality [Recovered/Resolved]
  - Delusion [Recovered/Resolved]
